FAERS Safety Report 5815577-9 (Version None)
Quarter: 2008Q3

REPORT INFORMATION
  Report Type: 
  Country: None (occurrence: None)
  Receive Date: 20080718
  Receipt Date: 20080709
  Transmission Date: 20090109
  Serious: Yes (Hospitalization)
  Sender: FDA-Public Use
  Company Number: ES-PFIZER INC-2008058233

PATIENT
  Age: 58 Year
  Sex: Male

DRUGS (4)
  1. SOLU-MODERIN [Suspect]
  2. ETOPOSIDE [Suspect]
  3. CISPLATIN [Suspect]
  4. CYTARABINE [Suspect]

REACTIONS (2)
  - ABDOMINAL PAIN [None]
  - NAUSEA [None]
